FAERS Safety Report 9585958 (Version 2)
Quarter: 2013Q4

REPORT INFORMATION
  Report Type: Spontaneous
  Country: JP (occurrence: JP)
  Receive Date: 20131003
  Receipt Date: 20131003
  Transmission Date: 20140711
  Serious: Yes (Other)
  Sender: FDA-Public Use
  Company Number: JP-ROCHE-1280348

PATIENT
  Sex: Male
  Weight: 41 kg

DRUGS (12)
  1. MIRCERA [Suspect]
     Indication: NEPHROGENIC ANAEMIA
     Route: 042
     Dates: start: 20111004, end: 20120515
  2. BLOPRESS [Concomitant]
     Dosage: AFTER THE SUPPER
     Route: 048
     Dates: start: 20100922
  3. TAKEPRON [Concomitant]
     Dosage: AFTER THE BREAKFAST
     Route: 048
  4. PRECIPITATED CALCIUM CARBONATE [Concomitant]
     Dosage: IMMEDIATELY AFTER BREAKFAST
     Route: 048
  5. REMITCH [Concomitant]
     Dosage: BEFORE IT SLEEPS AFTER THE SUPPER
     Route: 048
  6. CONIEL [Concomitant]
     Dosage: AFTER THE SUPPER
     Route: 048
  7. POLARAMINE [Concomitant]
     Dosage: AFTER THE MEAL IN THE MORNING AND EVENING
     Route: 048
  8. PANALDINE [Concomitant]
     Dosage: AFTER THE MEAL IN THE MORNING AND EVENING
     Route: 048
  9. HALCION [Concomitant]
     Dosage: BEFORE IT SLEEPS
     Route: 048
  10. LOXONIN [Concomitant]
     Indication: PAIN
     Dosage: DOSAGE IS UNCERTAIN.
     Route: 062
  11. INTEBAN [Concomitant]
     Indication: PAIN
     Dosage: DOSAGE IS UNCERTAIN.
     Route: 062
  12. OPALMON [Concomitant]
     Dosage: AFTER THE SUPPER DAYTIME IN THE MORNING
     Route: 048

REACTIONS (4)
  - Anaemia [Recovered/Resolved]
  - Bronchiectasis [Recovered/Resolved]
  - Gastritis atrophic [Unknown]
  - Gastric ulcer [Unknown]
